FAERS Safety Report 7027199-5 (Version None)
Quarter: 2010Q4

REPORT INFORMATION
  Report Type: 
  Country: None (occurrence: None)
  Receive Date: 20101001
  Receipt Date: 20101001
  Transmission Date: 20110411
  Serious: Yes (Life-Threatening)
  Sender: FDA-Public Use
  Company Number: None

PATIENT
  Sex: Female
  Weight: 48.5 kg

DRUGS (1)
  1. PACLITAXEL [Suspect]
     Indication: OVARIAN CANCER
     Dosage: 210MG X1 IV DRIP
     Route: 041
     Dates: start: 20100929, end: 20100929

REACTIONS (3)
  - CYANOSIS [None]
  - DYSPNOEA [None]
  - UNRESPONSIVE TO STIMULI [None]
